FAERS Safety Report 21796768 (Version 1)
Quarter: 2022Q4

REPORT INFORMATION
  Report Type: Spontaneous
  Country: US (occurrence: US)
  Receive Date: 20221230
  Receipt Date: 20221230
  Transmission Date: 20230112
  Serious: No
  Sender: FDA-Public Use
  Company Number: US-SUNOVION-2022SUN003503AA

PATIENT
  Sex: Female

DRUGS (2)
  1. ESZOPICLONE [Suspect]
     Active Substance: ESZOPICLONE
     Dosage: UNK
     Route: 065
  2. LUNESTA [Suspect]
     Active Substance: ESZOPICLONE
     Dosage: 3 MG
     Route: 048

REACTIONS (2)
  - Middle insomnia [Unknown]
  - Anxiety [Unknown]
